FAERS Safety Report 20835240 (Version 1)
Quarter: 2022Q2

REPORT INFORMATION
  Report Type: Spontaneous
  Country: DE (occurrence: DE)
  Receive Date: 20220516
  Receipt Date: 20220516
  Transmission Date: 20220721
  Serious: Yes (Other)
  Sender: FDA-Public Use
  Company Number: DE-JNJFOC-20220510276

PATIENT

DRUGS (1)
  1. IBRUTINIB [Suspect]
     Active Substance: IBRUTINIB
     Indication: Waldenstrom^s macroglobulinaemia
     Route: 048

REACTIONS (14)
  - Febrile neutropenia [Unknown]
  - Agranulocytosis [Unknown]
  - Neutropenic infection [Unknown]
  - Neutropenic sepsis [Unknown]
  - Haemorrhage [Unknown]
  - Central nervous system haemorrhage [Unknown]
  - Atrial fibrillation [Unknown]
  - Neutropenia [Unknown]
  - Hypertension [Unknown]
  - Diarrhoea [Unknown]
  - Infection [Unknown]
  - Neutrophil count decreased [Unknown]
  - Atrial flutter [Unknown]
  - Neoplasm malignant [Unknown]
